FAERS Safety Report 6670309-X (Version None)
Quarter: 2010Q2

REPORT INFORMATION
  Report Type: 
  Country: None (occurrence: None)
  Receive Date: 20100406
  Receipt Date: 20100330
  Transmission Date: 20101027
  Serious: Yes (Other)
  Sender: FDA-Public Use
  Company Number: GB-BRISTOL-MYERS SQUIBB COMPANY-15044167

PATIENT
  Age: 6 Decade
  Sex: Male

DRUGS (1)
  1. QUESTRAN [Suspect]
     Indication: DIARRHOEA

REACTIONS (1)
  - NEOPLASM MALIGNANT [None]
